FAERS Safety Report 4779791-6 (Version None)
Quarter: 2005Q3

REPORT INFORMATION
  Report Type: 
  Country: None (occurrence: None)
  Receive Date: 20050914
  Receipt Date: 20040720
  Transmission Date: 20060218
  Serious: Yes (Death)
  Sender: FDA-Public Use
  Company Number: 163-20785-03120593

PATIENT
  Age: 67 Year
  Sex: Male

DRUGS (4)
  1. THALOMID [Suspect]
     Indication: METASTATIC MALIGNANT MELANOMA
     Dosage: 150 MG INCREASED TO 200 MG DAILY, DAILY, ORAL
     Route: 048
     Dates: start: 20020827, end: 20031021
  2. TAXOTERE [Suspect]
     Indication: METASTATIC MALIGNANT MELANOMA
  3. TEMODAR [Suspect]
     Indication: METASTATIC MALIGNANT MELANOMA
  4. DACARBAZINE [Suspect]
     Indication: METASTATIC MALIGNANT MELANOMA

REACTIONS (9)
  - ABDOMINAL PAIN UPPER [None]
  - DEATH [None]
  - DISEASE PROGRESSION [None]
  - DYSPEPSIA [None]
  - GASTRITIS [None]
  - METASTASES TO LUNG [None]
  - METASTASES TO LYMPH NODES [None]
  - METASTASES TO SPINE [None]
  - ULCER [None]
